FAERS Safety Report 7706734-5 (Version None)
Quarter: 2011Q3

REPORT INFORMATION
  Report Type: 
  Country: None (occurrence: None)
  Receive Date: 20110818
  Receipt Date: 20110803
  Transmission Date: 20111222
  Serious: Yes (Other)
  Sender: FDA-Public Use
  Company Number: 20110571

PATIENT
  Age: 33 Year
  Sex: Female
  Weight: 65 kg

DRUGS (1)
  1. VENOFER [Suspect]
     Indication: IRON DEFICIENCY ANAEMIA
     Dosage: 200 MG INTRAVENOUS
     Route: 042
     Dates: start: 20110613, end: 20110613

REACTIONS (5)
  - HAEMOGLOBIN DECREASED [None]
  - MATERNAL EXPOSURE DURING PREGNANCY [None]
  - PARAESTHESIA ORAL [None]
  - CHILLS [None]
  - HYPERSENSITIVITY [None]
